FAERS Safety Report 24001167 (Version 1)
Quarter: 2024Q2

REPORT INFORMATION
  Report Type: Spontaneous
  Country: US (occurrence: None)
  Receive Date: 20240621
  Receipt Date: 20240621
  Transmission Date: 20240715
  Serious: Yes (Other)
  Sender: FDA-Public Use
  Company Number: None

PATIENT
  Age: 68 Year
  Sex: Female
  Weight: 64.8 kg

DRUGS (1)
  1. INFLECTRA [Suspect]
     Active Substance: INFLIXIMAB-DYYB
     Dosage: OTHER FREQUENCY : 2ND LOADING DOSE;?
     Route: 041
     Dates: start: 20240524, end: 20240524

REACTIONS (5)
  - Pyrexia [None]
  - Rash [None]
  - Rash [None]
  - Drooling [None]
  - Salivary hypersecretion [None]

NARRATIVE: CASE EVENT DATE: 20240606
